FAERS Safety Report 6059166-2 (Version None)
Quarter: 2009Q1

REPORT INFORMATION
  Report Type: 
  Country: None (occurrence: None)
  Receive Date: 20090127
  Receipt Date: 20090127
  Transmission Date: 20090719
  Serious: Yes (Life-Threatening, Other)
  Sender: FDA-Public Use
  Company Number: None

PATIENT
  Sex: Male
  Weight: 81.6475 kg

DRUGS (1)
  1. CHANTIX [Suspect]
     Indication: SMOKING CESSATION THERAPY
     Dosage: 1 MG, AFTER FINISHING .5MG ONE TAB A DAY PO
     Route: 048

REACTIONS (4)
  - ABDOMINAL PAIN [None]
  - MYOCARDIAL INFARCTION [None]
  - PANCREATIC DISORDER [None]
  - PROCEDURAL COMPLICATION [None]
